FAERS Safety Report 12432741 (Version 1)
Quarter: 2016Q2

REPORT INFORMATION
  Report Type: Spontaneous
  Country: DE (occurrence: DE)
  Receive Date: 20160603
  Receipt Date: 20160603
  Transmission Date: 20160815
  Serious: Yes (Other)
  Sender: FDA-Public Use
  Company Number: DE-DRREDDYS-GER/GER/16/0080068

PATIENT
  Age: 23 Year
  Sex: Male

DRUGS (10)
  1. SERTRALINE [Suspect]
     Active Substance: SERTRALINE HYDROCHLORIDE
     Indication: PRODUCT USED FOR UNKNOWN INDICATION
     Route: 048
     Dates: start: 20140526, end: 20150528
  2. ERGENYL [Concomitant]
     Active Substance: VALPROIC ACID
     Route: 048
     Dates: start: 20140613, end: 20140615
  3. ERGENYL [Concomitant]
     Active Substance: VALPROIC ACID
     Route: 048
     Dates: start: 20140616, end: 20140715
  4. SERTRALINE [Suspect]
     Active Substance: SERTRALINE HYDROCHLORIDE
     Route: 048
     Dates: start: 20140716, end: 20140717
  5. ERGENYL [Concomitant]
     Active Substance: VALPROIC ACID
     Indication: PRODUCT USED FOR UNKNOWN INDICATION
     Route: 048
     Dates: start: 20140612
  6. SERTRALINE [Suspect]
     Active Substance: SERTRALINE HYDROCHLORIDE
     Route: 048
     Dates: start: 20140702, end: 20140715
  7. SERTRALINE [Suspect]
     Active Substance: SERTRALINE HYDROCHLORIDE
     Route: 048
     Dates: start: 20140529, end: 20140531
  8. SERTRALINE [Suspect]
     Active Substance: SERTRALINE HYDROCHLORIDE
     Route: 048
     Dates: start: 20140601, end: 20140701
  9. ERGENYL [Concomitant]
     Active Substance: VALPROIC ACID
     Route: 048
     Dates: start: 20140716
  10. ERGENYL [Concomitant]
     Active Substance: VALPROIC ACID
     Route: 048
     Dates: start: 20140717

REACTIONS (3)
  - Syncope [Recovered/Resolved]
  - Epistaxis [Recovered/Resolved]
  - Circulatory collapse [Recovered/Resolved]

NARRATIVE: CASE EVENT DATE: 20140709
